FAERS Safety Report 5006475-1 (Version None)
Quarter: 2006Q2

REPORT INFORMATION
  Report Type: 
  Country: None (occurrence: None)
  Receive Date: 20060519
  Receipt Date: 20060508
  Transmission Date: 20061013
  Serious: Yes (Other)
  Sender: FDA-Public Use
  Company Number: MX-AVENTIS-200615002GDDC

PATIENT
  Age: 32 Year
  Sex: Female

DRUGS (2)
  1. ARAVA [Suspect]
     Indication: MIXED CONNECTIVE TISSUE DISEASE
     Route: 048
     Dates: start: 20030101, end: 20051101
  2. DEFLAZACORT [Suspect]
     Indication: MIXED CONNECTIVE TISSUE DISEASE
     Route: 048
     Dates: start: 19930101

REACTIONS (4)
  - CEREBRAL VENTRICLE DILATATION [None]
  - DRUG EXPOSURE DURING PREGNANCY [None]
  - LABORATORY TEST INTERFERENCE [None]
  - ULTRASOUND ANTENATAL SCREEN ABNORMAL [None]
